FAERS Safety Report 7411007-4 (Version None)
Quarter: 2011Q1

REPORT INFORMATION
  Report Type: 
  Country: None (occurrence: None)
  Receive Date: 20110302
  Receipt Date: 20101101
  Transmission Date: 20110831
  Serious: No
  Sender: FDA-Public Use
  Company Number: 016940

PATIENT
  Sex: Female
  Weight: 79.4 kg

DRUGS (5)
  1. IRON [Concomitant]
  2. ATENOLOL [Suspect]
     Indication: HYPERTENSION
     Dosage: (25 MG QD ORAL)
     Route: 048
     Dates: start: 20100713
  3. AZATHIOPRINE [Concomitant]
  4. FLAGYL [Concomitant]
  5. CIMZIA [Suspect]
     Indication: CROHN'S DISEASE
     Dosage: (400 MG ..X/MONTH, 2 SHOTS SUBCUTANEOUS)
     Route: 058
     Dates: start: 20100212

REACTIONS (8)
  - HEART RATE DECREASED [None]
  - FISTULA [None]
  - FEELING COLD [None]
  - DRUG EXPOSURE DURING PREGNANCY [None]
  - BLOOD PRESSURE DECREASED [None]
  - DRUG INEFFECTIVE [None]
  - ANXIETY [None]
  - BREAST FEEDING [None]
